FAERS Safety Report 8042637-7 (Version None)
Quarter: 2012Q1

REPORT INFORMATION
  Report Type: 
  Country: None (occurrence: None)
  Receive Date: 20120112
  Receipt Date: 20120106
  Transmission Date: 20120608
  Serious: Yes (Hospitalization, Other)
  Sender: FDA-Public Use
  Company Number: US-BAYER-2011-029615

PATIENT
  Age: 26 Year
  Sex: Female
  Weight: 101.59 kg

DRUGS (3)
  1. YASMIN [Suspect]
     Indication: ACNE
     Dosage: UNK
     Route: 048
     Dates: start: 20030501, end: 20060801
  2. YASMIN [Suspect]
     Indication: PREMENSTRUAL SYNDROME
  3. ANAPROX [Concomitant]
     Dosage: UNK UNK, PRN

REACTIONS (4)
  - PAIN [None]
  - CHOLECYSTITIS CHRONIC [None]
  - CHOLELITHIASIS [None]
  - INJURY [None]
